FAERS Safety Report 15964873 (Version 4)
Quarter: 2019Q3

REPORT INFORMATION
  Report Type: Report from Study
  Country: BR (occurrence: BR)
  Receive Date: 20190215
  Receipt Date: 20190710
  Transmission Date: 20191004
  Serious: Yes (Hospitalization)
  Sender: FDA-Public Use
  Company Number: BR-ROCHE-2262750

PATIENT
  Age: 57 Year
  Sex: Female
  Weight: 56.2 kg

DRUGS (24)
  1. OXIBUTIN [Concomitant]
     Route: 065
     Dates: start: 20151103
  2. DEXAMETHASONE. [Concomitant]
     Active Substance: DEXAMETHASONE
     Dosage: SUBSEQUENT DOSE ON 18/NOV/2015
     Route: 065
     Dates: start: 20151202
  3. METHYLPREDNISOLONE. [Concomitant]
     Active Substance: METHYLPREDNISOLONE
     Route: 065
     Dates: start: 20170114, end: 20170118
  4. BACLOFEN. [Concomitant]
     Active Substance: BACLOFEN
     Route: 065
     Dates: start: 20140911, end: 20161016
  5. CHOLECALCIFEROL [Concomitant]
     Active Substance: CHOLECALCIFEROL
     Route: 065
     Dates: start: 20131226, end: 20160518
  6. BACLOFEN. [Concomitant]
     Active Substance: BACLOFEN
     Route: 065
     Dates: start: 20150924, end: 20151118
  7. BACLOFEN. [Concomitant]
     Active Substance: BACLOFEN
     Route: 065
     Dates: start: 20151203, end: 20160427
  8. PAROXETIN [PAROXETINE] [Concomitant]
     Active Substance: PAROXETINE
     Route: 065
     Dates: start: 20150307
  9. BACLOFEN. [Concomitant]
     Active Substance: BACLOFEN
     Route: 065
     Dates: start: 20160504, end: 20160727
  10. OCRELIZUMAB. [Suspect]
     Active Substance: OCRELIZUMAB
     Indication: PRIMARY PROGRESSIVE MULTIPLE SCLEROSIS
     Dosage: DUAL INFUSIONS SEPARATED BY 14 DAYS EVERY 24 WEEKS (FREQUENCY AS PER PROTOCOL).?SUBSEQUENT DOSES REC
     Route: 042
     Dates: start: 20120816
  11. PARACETAMOL [Concomitant]
     Active Substance: ACETAMINOPHEN
     Indication: UPPER RESPIRATORY TRACT INFECTION
     Dosage: SUBSEQUENT DOSE ON 30/AUG/2012, 31/JAN/2013, 14/FEB/2013, 18/JUL/2013, 01/AUG/2013, 26/DEC/2013, 31/
     Route: 065
     Dates: start: 20120816
  12. LORATADIN [Concomitant]
     Active Substance: LORATADINE
     Dosage: SUBSEQUENT DOSE ON 30/AUG/2012, 31/JAN/2013, 14/FEB/2013, 18/JUL/2013, 01/AUG/2013, 26/DEC/2013, 31/
     Route: 065
     Dates: start: 20120816
  13. CHOLECALCIFEROL [Concomitant]
     Active Substance: CHOLECALCIFEROL
     Route: 065
     Dates: start: 20160519
  14. OCRELIZUMAB. [Suspect]
     Active Substance: OCRELIZUMAB
     Indication: PRIMARY PROGRESSIVE MULTIPLE SCLEROSIS
     Dosage: SUBSEQUENT DOSES RECEIVED ON 02/DEC/2015, 05/MAY/2016, 18/MAY/2016, 19/OCT/2016, 03/NOV/2016, 06/APR
     Route: 042
     Dates: start: 20151118
  15. PARACETAMOL [Concomitant]
     Active Substance: ACETAMINOPHEN
     Route: 065
     Dates: start: 20130805, end: 20130818
  16. PARACETAMOL [Concomitant]
     Active Substance: ACETAMINOPHEN
     Route: 065
     Dates: start: 20160926, end: 20161005
  17. BACLOFEN. [Concomitant]
     Active Substance: BACLOFEN
     Route: 065
     Dates: start: 20131015, end: 20140130
  18. METHYLPREDNISOLONE. [Concomitant]
     Active Substance: METHYLPREDNISOLONE
     Indication: MULTIPLE SCLEROSIS
     Dosage: SUBSEQUENT DOSE ON 30/AUG/2012, 31/JAN/2013, 14/FEB/2013, 18/JUL/2013, 01/AUG/2013, 26/DEC/2013, 31/
     Route: 065
     Dates: start: 20120816
  19. BACLOFEN. [Concomitant]
     Active Substance: BACLOFEN
     Indication: MUSCLE SPASMS
     Route: 065
     Dates: start: 20140131, end: 20140630
  20. BACLOFEN. [Concomitant]
     Active Substance: BACLOFEN
     Route: 065
     Dates: start: 20151119, end: 20151202
  21. BACLOFEN. [Concomitant]
     Active Substance: BACLOFEN
     Route: 065
     Dates: start: 20160728
  22. CALCIUM CARBONATE. [Concomitant]
     Active Substance: CALCIUM CARBONATE
     Indication: OSTEOPOROSIS
     Route: 065
     Dates: start: 20170915
  23. PAROXETIN [PAROXETINE] [Concomitant]
     Active Substance: PAROXETINE
     Indication: ANXIETY
     Route: 065
     Dates: start: 201102, end: 20150226
  24. SIMVASTATINE [Concomitant]
     Active Substance: SIMVASTATIN
     Route: 065
     Dates: start: 20160519

REACTIONS (1)
  - Pneumonia [Recovered/Resolved]

NARRATIVE: CASE EVENT DATE: 20190111
